APPROVED DRUG PRODUCT: NAPROXEN
Active Ingredient: NAPROXEN
Strength: 500MG
Dosage Form/Route: TABLET;ORAL
Application: A074211 | Product #003
Applicant: ROXANE LABORATORIES INC
Approved: Feb 28, 1994 | RLD: No | RS: No | Type: DISCN